FAERS Safety Report 25112043 (Version 1)
Quarter: 2025Q1

REPORT INFORMATION
  Report Type: Spontaneous
  Country: US (occurrence: US)
  Receive Date: 20250324
  Receipt Date: 20250324
  Transmission Date: 20250409
  Serious: No
  Sender: NOVARTIS
  Company Number: US-002147023-NVSC2025US048606

PATIENT

DRUGS (7)
  1. COSENTYX [Suspect]
     Active Substance: SECUKINUMAB
     Indication: Product used for unknown indication
     Route: 050
  2. COSENTYX [Suspect]
     Active Substance: SECUKINUMAB
     Route: 050
  3. COSENTYX [Suspect]
     Active Substance: SECUKINUMAB
     Route: 050
  4. COSENTYX [Suspect]
     Active Substance: SECUKINUMAB
     Route: 050
  5. COSENTYX [Suspect]
     Active Substance: SECUKINUMAB
     Route: 050
  6. COSENTYX [Suspect]
     Active Substance: SECUKINUMAB
     Route: 050
  7. COSENTYX [Suspect]
     Active Substance: SECUKINUMAB
     Route: 050

REACTIONS (1)
  - Product storage error [Unknown]
